FAERS Safety Report 5350405-X (Version None)
Quarter: 2007Q2

REPORT INFORMATION
  Report Type: 
  Country: None (occurrence: None)
  Receive Date: 20070605
  Receipt Date: 20070605
  Transmission Date: 20071010
  Serious: Yes (Hospitalization)
  Sender: FDA-Public Use
  Company Number: None

PATIENT
  Age: 42 Year
  Sex: Male
  Weight: 105 kg

DRUGS (17)
  1. INTERFERON ALFA 2A [Suspect]
     Indication: HEPATITIS C
     Dosage: 3 MILLION UNITS THREE TIMES/WEEK SQ
     Route: 058
     Dates: start: 20061208, end: 20061229
  2. ACETAMINOPHEN [Concomitant]
  3. ASPIRIN [Concomitant]
  4. CLOPIDOGREL BISULFATE [Concomitant]
  5. DAPSONE [Concomitant]
  6. DARBEPOETIN ALFA [Concomitant]
  7. FUROSEMIDE [Concomitant]
  8. GEMFIBROZIL [Concomitant]
  9. INTERFERON ALFA-2B [Concomitant]
  10. SYNTHROID [Concomitant]
  11. LISINOPRIL [Concomitant]
  12. METOPROLOL TARTRATE [Concomitant]
  13. MYCOPHENOLATE MOFETIL [Concomitant]
  14. NIFEDIPINE [Concomitant]
  15. OMEPRAZOLE [Concomitant]
  16. SIROLIMUS [Concomitant]
  17. SODIUM POLYSTYRENE SULF [Concomitant]

REACTIONS (4)
  - HYPOTENSION [None]
  - HYPOVOLAEMIA [None]
  - INFLUENZA LIKE ILLNESS [None]
  - RENAL FAILURE ACUTE [None]
